FAERS Safety Report 6599498-2 (Version None)
Quarter: 2010Q1

REPORT INFORMATION
  Report Type: 
  Country: None (occurrence: None)
  Receive Date: 20100224
  Receipt Date: 20100219
  Transmission Date: 20100710
  Serious: Yes (Other)
  Sender: FDA-Public Use
  Company Number: HQWYE097618JUL06

PATIENT
  Sex: Female

DRUGS (10)
  1. PREMPRO [Suspect]
     Indication: MENOPAUSAL SYMPTOMS
  2. PREMPRO [Suspect]
     Indication: HORMONE REPLACEMENT THERAPY
  3. ESTROGEN NOS [Suspect]
  4. MEDROXYPROGESTERONE ACETATE [Suspect]
     Indication: MENOPAUSAL SYMPTOMS
  5. MEDROXYPROGESTERONE ACETATE [Suspect]
     Indication: HORMONE REPLACEMENT THERAPY
  6. PREMARIN [Suspect]
  7. PREMARIN [Suspect]
     Indication: MENOPAUSAL SYMPTOMS
  8. PREMARIN [Suspect]
     Indication: HORMONE REPLACEMENT THERAPY
  9. PROVERA [Suspect]
     Indication: MENOPAUSAL SYMPTOMS
  10. PROVERA [Suspect]
     Indication: HORMONE REPLACEMENT THERAPY

REACTIONS (1)
  - BREAST CANCER METASTATIC [None]
